FAERS Safety Report 7844283-4 (Version None)
Quarter: 2011Q4

REPORT INFORMATION
  Report Type: 
  Country: None (occurrence: None)
  Receive Date: 20111025
  Receipt Date: 20111011
  Transmission Date: 20120403
  Serious: Yes (Other)
  Sender: FDA-Public Use
  Company Number: US-ELI_LILLY_AND_COMPANY-US201105006000

PATIENT
  Sex: Female

DRUGS (2)
  1. FORTEO [Suspect]
     Dosage: 20 UG, QD
     Route: 065
  2. FORTEO [Suspect]
     Indication: OSTEOPOROSIS
     Dosage: 20 UG, QD
     Dates: start: 20110325

REACTIONS (9)
  - HERPES ZOSTER [None]
  - FEELING ABNORMAL [None]
  - HIP ARTHROPLASTY [None]
  - CONTUSION [None]
  - PAIN [None]
  - RASH [None]
  - BACK PAIN [None]
  - SKIN DISCOLOURATION [None]
  - SKIN EXFOLIATION [None]
